FAERS Safety Report 25733608 (Version 1)
Quarter: 2025Q3

REPORT INFORMATION
  Report Type: Spontaneous
  Country: US (occurrence: US)
  Receive Date: 20250828
  Receipt Date: 20250828
  Transmission Date: 20251021
  Serious: Yes (Life-Threatening, Hospitalization, Other)
  Sender: EXELA PHARMA SCIENCES
  Company Number: US-EXELAPHARMA-2025EXLA00161

PATIENT
  Age: 35 Year
  Sex: Male

DRUGS (4)
  1. FENTANYL CITRATE [Suspect]
     Active Substance: FENTANYL CITRATE
     Indication: Substance use
     Dates: start: 202505
  2. FENTANYL CITRATE [Suspect]
     Active Substance: FENTANYL CITRATE
     Indication: Sedation
  3. XYLAZINE [Suspect]
     Active Substance: XYLAZINE
     Indication: Substance use
     Dates: start: 202505
  4. NALOXONE [Concomitant]
     Active Substance: NALOXONE

REACTIONS (12)
  - Agonal respiration [Recovered/Resolved]
  - Unresponsive to stimuli [Recovered/Resolved]
  - Psychomotor hyperactivity [Recovered/Resolved]
  - Sinus tachycardia [Recovered/Resolved]
  - Leukocytosis [Recovered/Resolved]
  - Blood lactic acid increased [Recovered/Resolved]
  - Acute kidney injury [Recovered/Resolved]
  - Hypokalaemia [Recovered/Resolved]
  - Seizure like phenomena [Recovered/Resolved]
  - Toxicity to various agents [Unknown]
  - Respiratory failure [Recovered/Resolved]
  - Hypertension [Recovered/Resolved]
